FAERS Safety Report 4306812-7 (Version None)
Quarter: 2004Q1

REPORT INFORMATION
  Report Type: 
  Country: None (occurrence: None)
  Receive Date: 20040227
  Receipt Date: 20040218
  Transmission Date: 20041129
  Serious: Yes (Life-Threatening, Hospitalization, Other)
  Sender: FDA-Public Use
  Company Number: NL-BRISTOL-MYERS SQUIBB COMPANY-12515094

PATIENT
  Age: 77 Year
  Sex: Female

DRUGS (1)
  1. METFORMIN HCL [Suspect]
     Dosage: DAILY DOSE: ONE 850 MILLIGRAM TABLET + FOUR 500 MILLIGRAM TABLETS
     Route: 048
     Dates: start: 20031201, end: 20040114

REACTIONS (8)
  - ACCIDENTAL OVERDOSE [None]
  - DEHYDRATION [None]
  - DIALYSIS [None]
  - LACTIC ACIDOSIS [None]
  - MEDICATION ERROR [None]
  - RENAL FAILURE ACUTE [None]
  - SURGERY [None]
  - VOMITING [None]
